FAERS Safety Report 7737843-2 (Version None)
Quarter: 2011Q3

REPORT INFORMATION
  Report Type: 
  Country: None (occurrence: None)
  Receive Date: 20110908
  Receipt Date: 20110830
  Transmission Date: 20111222
  Serious: Yes (Hospitalization)
  Sender: FDA-Public Use
  Company Number: PHHY2011JP78790

PATIENT
  Age: 66 Year
  Sex: Female

DRUGS (1)
  1. PAMIDRONATE DISODIUM [Suspect]
     Indication: METASTASES TO BONE
     Dosage: 45 MG, QW2

REACTIONS (2)
  - ORAL CAVITY FISTULA [None]
  - OSTEONECROSIS OF JAW [None]
